FAERS Safety Report 4357726-8 (Version None)
Quarter: 2004Q2

REPORT INFORMATION
  Report Type: 
  Country: None (occurrence: None)
  Receive Date: 20040513
  Receipt Date: 20040504
  Transmission Date: 20050107
  Serious: Yes (Hospitalization)
  Sender: FDA-Public Use
  Company Number: FR-GLAXOSMITHKLINE-B0332389A

PATIENT
  Age: 53 Year
  Sex: Male

DRUGS (7)
  1. ZEFFIX [Suspect]
     Route: 048
     Dates: start: 20010106
  2. ALLOPURINOL TAB [Suspect]
     Route: 048
     Dates: start: 20010330, end: 20030707
  3. GLYBURIDE [Suspect]
     Route: 048
     Dates: start: 20020722, end: 20040107
  4. DELURSAN [Suspect]
     Route: 048
     Dates: start: 20010106
  5. AMLODIPINE [Suspect]
     Route: 048
     Dates: start: 20011217
  6. PROGRAF [Suspect]
     Route: 048
     Dates: start: 20010106
  7. IMMUNE GLOBULIN INTRAVENOUS (HUMAN) [Concomitant]
     Route: 042

REACTIONS (4)
  - ANAEMIA [None]
  - BONE MARROW DEPRESSION [None]
  - LEUKOPENIA [None]
  - NEUTROPENIA [None]
